FAERS Safety Report 25750875 (Version 1)
Quarter: 2025Q3

REPORT INFORMATION
  Report Type: Spontaneous
  Country: US (occurrence: None)
  Receive Date: 20250830
  Receipt Date: 20250830
  Transmission Date: 20251021
  Serious: No
  Sender: FDA-CTU
  Company Number: None

PATIENT
  Age: 68 Year
  Sex: Female
  Weight: 99 kg

DRUGS (5)
  1. QSYMIA [Suspect]
     Active Substance: PHENTERMINE HYDROCHLORIDE\TOPIRAMATE
     Indication: Weight decreased
     Route: 048
  2. LOSARTAN [Concomitant]
     Active Substance: LOSARTAN
  3. ATENOLOL [Concomitant]
     Active Substance: ATENOLOL
  4. multi-vitamins [Concomitant]
  5. CODEINE [Suspect]
     Active Substance: CODEINE

REACTIONS (4)
  - Muscle spasms [None]
  - Myalgia [None]
  - Pain in extremity [None]
  - Pain [None]

NARRATIVE: CASE EVENT DATE: 20241003
